FAERS Safety Report 17044621 (Version 1)
Quarter: 2019Q4

REPORT INFORMATION
  Report Type: Report from Study
  Country: US (occurrence: US)
  Receive Date: 20191118
  Receipt Date: 20191118
  Transmission Date: 20200122
  Serious: Yes (Death, Hospitalization, Other)
  Sender: FDA-Public Use
  Company Number: US-BRISTOL-MYERS SQUIBB COMPANY-BMS-2019-109958

PATIENT
  Sex: Female
  Weight: 72.6 kg

DRUGS (5)
  1. ALPRAZOLAM. [Concomitant]
     Active Substance: ALPRAZOLAM
     Indication: PRODUCT USED FOR UNKNOWN INDICATION
     Dosage: UNK
     Route: 065
     Dates: start: 20180110
  2. IPILIMUMAB [Suspect]
     Active Substance: IPILIMUMAB
     Indication: SOFT TISSUE SARCOMA
     Dosage: 68 MILLIGRAM, ONE TIME DOSE
     Route: 042
     Dates: start: 20181217
  3. PROCHLORPERAZ [Concomitant]
     Active Substance: PROCHLORPERAZINE MALEATE
     Indication: PRODUCT USED FOR UNKNOWN INDICATION
     Dosage: UNK
     Route: 065
     Dates: start: 20181214
  4. OXYCODONE [Concomitant]
     Active Substance: OXYCODONE
     Indication: PRODUCT USED FOR UNKNOWN INDICATION
     Dosage: UNK
     Route: 065
     Dates: start: 20190204
  5. NIVOLUMAB [Suspect]
     Active Substance: NIVOLUMAB
     Indication: SOFT TISSUE SARCOMA
     Dosage: 240 MILLIGRAM, ONE TIME DOSE
     Route: 042
     Dates: start: 20181217

REACTIONS (6)
  - Hepatic cirrhosis [Fatal]
  - Fatigue [Unknown]
  - Aspiration [Unknown]
  - Generalised oedema [Unknown]
  - Encephalopathy [Fatal]
  - Dysphagia [Unknown]

NARRATIVE: CASE EVENT DATE: 20190206
